FAERS Safety Report 7671460-8 (Version None)
Quarter: 2011Q3

REPORT INFORMATION
  Report Type: 
  Country: None (occurrence: None)
  Receive Date: 20110809
  Receipt Date: 20110808
  Transmission Date: 20111222
  Serious: Yes (Other)
  Sender: FDA-Public Use
  Company Number: AU-PFIZER INC-2011181608

PATIENT
  Age: 42 Year
  Sex: Female

DRUGS (2)
  1. VARENICLINE TARTRATE [Suspect]
  2. RISPERDAL CONSTA [Suspect]
     Indication: SCHIZOPHRENIA
     Dosage: 50 MG, 1X/DAY
     Route: 030

REACTIONS (2)
  - MENTAL DISORDER [None]
  - MALAISE [None]
